FAERS Safety Report 7267497-3 (Version None)
Quarter: 2011Q1

REPORT INFORMATION
  Report Type: 
  Country: None (occurrence: None)
  Receive Date: 20110201
  Receipt Date: 20110121
  Transmission Date: 20110831
  Serious: Yes (Hospitalization)
  Sender: FDA-Public Use
  Company Number: US-SANOFI-AVENTIS-2011SA004788

PATIENT
  Age: 63 Year
  Sex: Female

DRUGS (13)
  1. PROTONIX [Concomitant]
  2. RESTORIL [Concomitant]
  3. MAXZIDE [Concomitant]
  4. LOPRESSOR [Concomitant]
  5. TRANDATE [Concomitant]
  6. APRESOLINE [Concomitant]
  7. COUMADIN [Suspect]
     Indication: ATRIAL FIBRILLATION
     Route: 065
     Dates: start: 20091001
  8. MULTI-VITAMINS [Concomitant]
  9. MULTAQ [Suspect]
     Indication: ARRHYTHMIA
     Route: 048
     Dates: start: 20091201, end: 20091201
  10. ZOFRAN [Concomitant]
  11. VITAMIN B6 [Concomitant]
  12. TYLENOL-500 [Concomitant]
  13. ISONIAZID [Suspect]
     Route: 065
     Dates: start: 20091001, end: 20091228

REACTIONS (9)
  - ENCEPHALOPATHY [None]
  - HEPATIC FAILURE [None]
  - HAEMORRHAGE [None]
  - COAGULOPATHY [None]
  - BLOOD CREATININE INCREASED [None]
  - HEPATIC ENZYME INCREASED [None]
  - HEPATIC STEATOSIS [None]
  - BLOOD BILIRUBIN INCREASED [None]
  - INTERNATIONAL NORMALISED RATIO INCREASED [None]
